FAERS Safety Report 16190546 (Version 2)
Quarter: 2019Q2

REPORT INFORMATION
  Report Type: Spontaneous
  Country: FR (occurrence: FR)
  Receive Date: 20190412
  Receipt Date: 20190429
  Transmission Date: 20190711
  Serious: Yes (Hospitalization)
  Sender: FDA-Public Use
  Company Number: FR-PFIZER INC-2019152235

PATIENT
  Age: 80 Year
  Sex: Female
  Weight: 54 kg

DRUGS (9)
  1. METHOTREXATE SODIUM. [Suspect]
     Active Substance: METHOTREXATE SODIUM
     Indication: PSORIASIS
     Dosage: 10 MG, WEEKLY
     Route: 048
     Dates: start: 20161216
  2. SPECIAFOLDINE [Concomitant]
     Active Substance: FOLIC ACID
     Dosage: 10 MG, CYCLIC (EVERY 7 DAYS)
     Route: 048
     Dates: start: 2011
  3. DAIVOBET [Concomitant]
     Active Substance: BETAMETHASONE DIPROPIONATE\CALCIPOTRIENE
     Route: 003
     Dates: start: 20160610
  4. SOOLANTRA [Concomitant]
     Active Substance: IVERMECTIN
     Dosage: NR
     Route: 003
     Dates: start: 20161216
  5. ROZEX [METRONIDAZOLE] [Concomitant]
     Dosage: NR
     Route: 003
     Dates: start: 20160610
  6. METHOTREXATE. [Concomitant]
     Active Substance: METHOTREXATE
     Indication: PSORIASIS
     Dosage: 15 MG, WEEKLY
     Route: 048
     Dates: start: 2011, end: 20161216
  7. DIPROSONE [Concomitant]
     Active Substance: BETAMETHASONE DIPROPIONATE
     Dosage: NR
     Route: 003
     Dates: start: 20160610
  8. SORIATANE [Concomitant]
     Active Substance: ACITRETIN
     Dosage: NR
     Route: 048
     Dates: start: 20180610
  9. CLOBEX [CLOBETASOL PROPIONATE] [Concomitant]
     Dosage: UNK
     Route: 003

REACTIONS (1)
  - Transient ischaemic attack [Recovered/Resolved]

NARRATIVE: CASE EVENT DATE: 20181220
